FAERS Safety Report 7624995 (Version 3)
Quarter: 2012Q4

REPORT INFORMATION
  Report Type: 
  Country: JP (occurrence: JP)
  Receive Date: 20101012
  Receipt Date: 20120906
  Transmission Date: 20130627
  Serious: Yes (Death)
  Sender: FDA-Public Use
  Company Number: JP-BAYER-201014970BYL

PATIENT
  Age: 68 Year
  Sex: Male
  Weight: 56 kg

DRUGS (3)
  1. NEXAVAR [Suspect]
     Indication: HEPATIC NEOPLASM MALIGNANT
     Dosage: 200 mg, BID
     Route: 048
     Dates: start: 20100809, end: 20100921
  2. LASIX [Concomitant]
     Dosage: Daily dose 20 mg
     Route: 048
  3. BLOPRESS [Concomitant]
     Dosage: Daily dose 8 mg
     Route: 048

REACTIONS (2)
  - Hepatic cancer [Fatal]
  - Palmar-plantar erythrodysaesthesia syndrome [Recovered/Resolved]
